FAERS Safety Report 5221839-9 (Version None)
Quarter: 2007Q1

REPORT INFORMATION
  Report Type: 
  Country: None (occurrence: None)
  Receive Date: 20070125
  Receipt Date: 20070125
  Transmission Date: 20070707
  Serious: Yes (Other)
  Sender: FDA-Public Use
  Company Number: None

PATIENT
  Age: 53 Year
  Sex: Female
  Weight: 75.7507 kg

DRUGS (1)
  1. BONIVA [Suspect]
     Indication: RESORPTION BONE INCREASED
     Dosage: 150 ONCE A MONTH PO
     Route: 048
     Dates: start: 20061028, end: 20061229

REACTIONS (2)
  - NERVE COMPRESSION [None]
  - PAIN [None]
